FAERS Safety Report 6212363-5 (Version None)
Quarter: 2009Q2

REPORT INFORMATION
  Report Type: 
  Country: None (occurrence: None)
  Receive Date: 20090529
  Receipt Date: 20080609
  Transmission Date: 20091009
  Serious: Yes (Hospitalization)
  Sender: FDA-Public Use
  Company Number: 2008TG0197

PATIENT
  Age: 42 Year
  Sex: Female

DRUGS (2)
  1. TRIGLIDE [Suspect]
     Indication: HYPERLIPIDAEMIA
     Dosage: 250 MG
  2. CANDESARTAN CILEXETIL/HYDROCHLOROTHIAZIDE UNKNOWN [Suspect]
     Indication: HYPERTENSION

REACTIONS (5)
  - BLOOD CALCIUM DECREASED [None]
  - BLOOD SODIUM DECREASED [None]
  - RENAL DISORDER [None]
  - RENAL FAILURE ACUTE [None]
  - RHABDOMYOLYSIS [None]
